FAERS Safety Report 7774359-1 (Version None)
Quarter: 2011Q3

REPORT INFORMATION
  Report Type: 
  Country: None (occurrence: None)
  Receive Date: 20110921
  Receipt Date: 20110914
  Transmission Date: 20111222
  Serious: Yes (Other)
  Sender: FDA-Public Use
  Company Number: GER/GER/11/0021164

PATIENT
  Age: 26 Year
  Sex: Female
  Weight: 60 kg

DRUGS (2)
  1. FOLIC ACID [Concomitant]
  2. CITALOPRAM HYDROBROMIDE [Suspect]
     Indication: DEPRESSION
     Dosage: ORAL
     Route: 048
     Dates: start: 20100828, end: 20110610

REACTIONS (4)
  - CONVULSION NEONATAL [None]
  - VENTOUSE EXTRACTION [None]
  - MATERNAL DRUGS AFFECTING FOETUS [None]
  - MYOCLONIC EPILEPSY [None]
